FAERS Safety Report 9773368 (Version 2)
Quarter: 2014Q1

REPORT INFORMATION
  Report Type: Spontaneous
  Country: JP (occurrence: JP)
  Receive Date: 20131219
  Receipt Date: 20140107
  Transmission Date: 20141002
  Serious: Yes (Hospitalization)
  Sender: FDA-Public Use
  Company Number: PHHY2013JP145111

PATIENT
  Age: 70 Year
  Sex: Male
  Weight: 64.2 kg

DRUGS (6)
  1. LOCHOL [Suspect]
     Dosage: 20 MG, QD AFTER DINNER
     Route: 048
  2. SITAGLIPTIN [Suspect]
     Indication: TYPE 2 DIABETES MELLITUS
     Dosage: 1 DF, QD AFTER BREAKFAST
     Route: 048
     Dates: start: 201103
  3. SITAGLIPTIN [Suspect]
     Route: 048
     Dates: start: 201108
  4. LANSOPRAZOLE [Concomitant]
     Dosage: 1 DF, QD BEFORE BEDTIME
     Route: 048
  5. CARBOCISTEINE [Concomitant]
     Dosage: 3 DF, PER DAY , THREE DIVIDED DOSES AFTER EACH MEAL
     Route: 048
  6. TIOTROPIUM BROMIDE MONOHYDRATE [Concomitant]
     Dosage: 2 DF, 2 SHOTS/DAY, ONCE DAILY
     Route: 048

REACTIONS (5)
  - Pneumonitis [Recovering/Resolving]
  - Respiratory failure [Recovering/Resolving]
  - Dyspnoea [Recovering/Resolving]
  - Lymphocyte count increased [Recovering/Resolving]
  - Full blood count increased [Recovering/Resolving]
